FAERS Safety Report 7258878-2 (Version None)
Quarter: 2011Q1

REPORT INFORMATION
  Report Type: 
  Country: None (occurrence: None)
  Receive Date: 20110129
  Receipt Date: 20100614
  Transmission Date: 20110831
  Serious: No
  Sender: FDA-Public Use
  Company Number: US-ABBOTT-10P-163-0651072-00

PATIENT
  Age: 51 Year
  Sex: Female

DRUGS (8)
  1. PLAQUENIL [Concomitant]
     Indication: ARTHRITIS
  2. HUMIRA [Suspect]
     Indication: RHEUMATOID ARTHRITIS
     Dates: start: 20100428
  3. LEXAPRO [Concomitant]
     Indication: DEPRESSION
  4. VIT C [Concomitant]
     Indication: ARTHRITIS
     Dosage: TAKES WITH THE FISH OIL DAILY
  5. VIT D [Concomitant]
     Indication: PRODUCT USED FOR UNKNOWN INDICATION
  6. IRON [Concomitant]
     Indication: PRODUCT USED FOR UNKNOWN INDICATION
  7. FISH OIL [Concomitant]
     Indication: PRODUCT USED FOR UNKNOWN INDICATION
  8. CALCIUM/MAGNESIUM [Concomitant]
     Indication: PRODUCT USED FOR UNKNOWN INDICATION
     Dosage: 1000/500, 1 PILL DAILY

REACTIONS (1)
  - NAUSEA [None]
